FAERS Safety Report 6271558-5 (Version None)
Quarter: 2009Q3

REPORT INFORMATION
  Report Type: 
  Country: None (occurrence: None)
  Receive Date: 20090717
  Receipt Date: 20090710
  Transmission Date: 20100115
  Serious: Yes (Death, Life-Threatening, Hospitalization)
  Sender: FDA-Public Use
  Company Number: BR-ABBOTT-09P-020-0571703-01

PATIENT
  Sex: Male
  Weight: 50 kg

DRUGS (4)
  1. RITONAVIR [Suspect]
     Indication: HIV INFECTION
     Route: 048
     Dates: start: 20080610, end: 20090508
  2. TMC114 [Concomitant]
     Indication: HIV INFECTION
     Route: 048
     Dates: start: 20060811
  3. TMC114 [Concomitant]
  4. TMC125 [Concomitant]
     Indication: HIV INFECTION
     Route: 048
     Dates: start: 20060811

REACTIONS (2)
  - HODGKIN'S DISEASE [None]
  - RENAL FAILURE [None]
